FAERS Safety Report 12466735 (Version 1)
Quarter: 2016Q2

REPORT INFORMATION
  Report Type: Spontaneous
  Country: US (occurrence: US)
  Receive Date: 20160615
  Receipt Date: 20160615
  Transmission Date: 20160815
  Serious: No
  Sender: FDA-Public Use
  Company Number: US-GLENMARK PHARMACEUTICALS INC, USA.-2015GMK016776

PATIENT

DRUGS (1)
  1. PRAVASTATIN SODIUM. [Suspect]
     Active Substance: PRAVASTATIN SODIUM
     Indication: BLOOD CHOLESTEROL INCREASED
     Dosage: 40 MG, QD
     Route: 048
     Dates: start: 201503, end: 20150424

REACTIONS (8)
  - Product odour abnormal [Recovered/Resolved]
  - Product substitution issue [Unknown]
  - Pain [Recovered/Resolved]
  - Skin odour abnormal [Recovered/Resolved]
  - Dysgeusia [Recovered/Resolved]
  - Product taste abnormal [Recovered/Resolved]
  - Insomnia [Recovered/Resolved]
  - Arthralgia [Recovered/Resolved]

NARRATIVE: CASE EVENT DATE: 201503
